FAERS Safety Report 13442279 (Version 1)
Quarter: 2017Q2

REPORT INFORMATION
  Report Type: Spontaneous
  Country: US (occurrence: US)
  Receive Date: 20170413
  Receipt Date: 20170413
  Transmission Date: 20170830
  Serious: Yes (Disabling)
  Sender: FDA-Public Use
  Company Number: None

PATIENT
  Age: 58 Year
  Sex: Male
  Weight: 94.5 kg

DRUGS (5)
  1. FUROSEMIDE. [Concomitant]
     Active Substance: FUROSEMIDE
  2. VALSARTAN. [Concomitant]
     Active Substance: VALSARTAN
  3. BABY ASPIRIN [Concomitant]
     Active Substance: ASPIRIN
  4. JANUVIA [Suspect]
     Active Substance: SITAGLIPTIN PHOSPHATE
     Indication: DIABETES MELLITUS
     Dates: start: 20090809, end: 20160311
  5. NIFEDIPINE. [Concomitant]
     Active Substance: NIFEDIPINE

REACTIONS (1)
  - Renal impairment [None]

NARRATIVE: CASE EVENT DATE: 20140304
